FAERS Safety Report 9305333 (Version 2)
Quarter: 2013Q2

REPORT INFORMATION
  Report Type: Spontaneous
  Country: CH (occurrence: None)
  Receive Date: 20130520
  Receipt Date: 20130607
  Transmission Date: 20140414
  Serious: Yes (Other)
  Sender: FDA-Public Use
  Company Number: 7211425

PATIENT
  Age: 35 Year
  Sex: Female

DRUGS (5)
  1. EUTHYROX (LEVOTHYROXINE SODIUM)(TABLET)(LEVOTHYROXINE SODIUM) [Suspect]
     Indication: HYPOTHYROIDISM
     Dates: end: 201203
  2. ABILIFY (ARIPIRAZOLE) (ARIPIPRAZOLE) [Concomitant]
  3. DALMADORM (FLURAZEPAM HYDROCHLORIDE) (FLURAZEPAM HYDROCHLORIDE) [Concomitant]
  4. FLUCTINE (FLUOXETINE HYDROCHLORIDE) (FLUOXETINE HYDROCHLORIDE) [Concomitant]
  5. LEXOTANIL (BROMAZEPAM) (BROMAZEPAM) [Concomitant]

REACTIONS (3)
  - Pre-eclampsia [None]
  - Exposure during pregnancy [None]
  - Unintended pregnancy [None]
